FAERS Safety Report 9739183 (Version 2)
Quarter: 2013Q4

REPORT INFORMATION
  Report Type: Spontaneous
  Country: US (occurrence: US)
  Receive Date: 20131209
  Receipt Date: 20131226
  Transmission Date: 20140711
  Serious: No
  Sender: FDA-Public Use
  Company Number: US-BAYER-2013-149875

PATIENT
  Age: 15 Year
  Sex: Female

DRUGS (7)
  1. MIDOL MENSTRUAL COMPLETE FORMULA [Suspect]
     Indication: HEADACHE
     Dosage: 3 DF, PRN
     Route: 048
  2. MIDOL MENSTRUAL COMPLETE FORMULA [Suspect]
     Indication: BREAST TENDERNESS
  3. MIDOL MENSTRUAL COMPLETE FORMULA [Suspect]
     Indication: FATIGUE
  4. MIDOL MENSTRUAL COMPLETE FORMULA [Suspect]
     Indication: PAIN
  5. MIDOL MENSTRUAL COMPLETE FORMULA [Suspect]
     Indication: NAUSEA
  6. MIDOL MENSTRUAL COMPLETE FORMULA [Suspect]
     Indication: MOOD SWINGS
  7. EQUATE [Concomitant]

REACTIONS (1)
  - Off label use [None]
